FAERS Safety Report 15426953 (Version 1)
Quarter: 2018Q3

REPORT INFORMATION
  Report Type: Report from Study
  Country: CA (occurrence: CA)
  Receive Date: 20180925
  Receipt Date: 20180925
  Transmission Date: 20181010
  Serious: Yes (Other)
  Sender: FDA-Public Use
  Company Number: CA-HLSUS-2018-CA-001159

PATIENT
  Age: 64 Year
  Sex: Male
  Weight: 73.6 kg

DRUGS (1)
  1. CLOZARIL [Suspect]
     Active Substance: CLOZAPINE
     Route: 048
     Dates: start: 20120404

REACTIONS (6)
  - Cough [Unknown]
  - Nasopharyngitis [Unknown]
  - Tremor [Unknown]
  - Body temperature increased [Unknown]
  - Fatigue [Unknown]
  - Productive cough [Unknown]

NARRATIVE: CASE EVENT DATE: 20180806
